FAERS Safety Report 7867479 (Version 3)
Quarter: 2012Q4

REPORT INFORMATION
  Report Type: Report from Study
  Country: DE (occurrence: DE)
  Receive Date: 20110323
  Receipt Date: 20121219
  Transmission Date: 20130627
  Serious: Yes (Hospitalization, Other)
  Sender: FDA-Public Use
  Company Number: DE-JNJFOC-20110302823

PATIENT
  Age: 78 Year
  Sex: Female
  Weight: 95 kg

DRUGS (14)
  1. PALEXIA RETARD [Suspect]
     Indication: PAIN
     Route: 048
     Dates: start: 20101108, end: 20101118
  2. HYDROCHLOROTHIAZIDE/RAMIPRIL [Concomitant]
     Indication: HYPERTENSION
  3. FUROSEMID [Concomitant]
     Indication: RENAL FAILURE CHRONIC
     Dates: start: 201006
  4. ASS [Concomitant]
     Indication: CORONARY ARTERY DISEASE
  5. ASS [Concomitant]
     Indication: HYPERTENSION
  6. TETRAZEPAM [Concomitant]
     Indication: MUSCLE SPASMS
  7. ROPINIROLE [Concomitant]
     Indication: PARKINSONISM
  8. MADOPAR [Concomitant]
     Indication: PARKINSON^S DISEASE
  9. FORADIL [Concomitant]
     Indication: ASTHMA
  10. JUNIK [Concomitant]
     Indication: ASTHMA
  11. SPIRIVA [Concomitant]
     Indication: OBSTRUCTIVE AIRWAYS DISORDER
     Dates: start: 201006
  12. ATARAX [Concomitant]
     Indication: PRURITUS
  13. INSULIN [Concomitant]
     Indication: TYPE 2 DIABETES MELLITUS
  14. TRAMADOL [Concomitant]

REACTIONS (1)
  - Mechanical ileus [Recovered/Resolved with Sequelae]
